FAERS Safety Report 8518288-4 (Version None)
Quarter: 2012Q3

REPORT INFORMATION
  Report Type: 
  Country: None (occurrence: None)
  Receive Date: 20120718
  Receipt Date: 20120103
  Transmission Date: 20120928
  Serious: Yes (Hospitalization)
  Sender: FDA-Public Use
  Company Number: US-BRISTOL-MYERS SQUIBB COMPANY-16326290

PATIENT
  Age: 84 Year
  Sex: Male
  Weight: 94 kg

DRUGS (2)
  1. COUMADIN [Suspect]
     Dates: start: 20110201
  2. PLAVIX [Suspect]
     Dates: start: 20111004, end: 20120102

REACTIONS (4)
  - HYPERSENSITIVITY [None]
  - RECTAL HAEMORRHAGE [None]
  - ARTHRITIS [None]
  - ANAEMIA [None]
